FAERS Safety Report 14253104 (Version 20)
Quarter: 2021Q3

REPORT INFORMATION
  Report Type: Spontaneous
  Country: JP (occurrence: JP)
  Receive Date: 20171206
  Receipt Date: 20210708
  Transmission Date: 20211014
  Serious: Yes (Hospitalization, Other)
  Sender: FDA-Public Use
  Company Number: JP-BRISTOL-MYERS SQUIBB COMPANY-BMS-2017-110429

PATIENT
  Age: 73 Year
  Sex: Male
  Weight: 63.3 kg

DRUGS (14)
  1. NESINA [Concomitant]
     Active Substance: ALOGLIPTIN BENZOATE
     Indication: TYPE 2 DIABETES MELLITUS
     Dosage: 25 MG, QD
     Route: 048
  2. DIACORT [Concomitant]
     Active Substance: DIFLORASONE DIACETATE
     Indication: RASH
     Route: 062
  3. THYRADIN S [Concomitant]
     Active Substance: LEVOTHYROXINE SODIUM
     Indication: THYROIDITIS CHRONIC
     Dosage: 25 ?G, QD
     Route: 048
     Dates: start: 20170518
  4. LOCOID [Concomitant]
     Active Substance: HYDROCORTISONE BUTYRATE
     Indication: RASH
     Route: 062
  5. TRAMAL [Concomitant]
     Active Substance: TRAMADOL
     Indication: CANCER PAIN
     Dosage: 25 MG,Q12H
     Route: 048
     Dates: start: 20171102
  6. NAUZELIN [Concomitant]
     Active Substance: DOMPERIDONE
     Indication: CANCER PAIN
     Dosage: 10 MG, Q12H
     Route: 048
     Dates: start: 20171102
  7. OPDIVO [Suspect]
     Active Substance: NIVOLUMAB
     Dosage: 200 MILLIGRAM
     Route: 041
     Dates: start: 20171006, end: 20171006
  8. FEXOFENADINE HYDROCHLORIDE. [Concomitant]
     Active Substance: FEXOFENADINE HYDROCHLORIDE
     Indication: RASH
     Dosage: 60 MG, Q12H
     Route: 048
     Dates: start: 20170911
  9. OPDIVO [Suspect]
     Active Substance: NIVOLUMAB
     Dosage: UNK
     Route: 041
  10. NIVOLUMAB [Suspect]
     Active Substance: NIVOLUMAB
     Indication: METASTATIC RENAL CELL CARCINOMA
     Dosage: 3 MILLIGRAM/KILOGRAM, Q2WK
     Route: 042
  11. SULBACILLIN [Suspect]
     Active Substance: AMPICILLIN SODIUM\SULBACTAM SODIUM
     Indication: PNEUMONIA
     Dosage: 3 GRAM, Q12H
     Route: 065
     Dates: start: 20170830, end: 201709
  12. GLIMEPIRIDE. [Concomitant]
     Active Substance: GLIMEPIRIDE
     Indication: TYPE 2 DIABETES MELLITUS
     Dosage: 5 MG, QD
     Route: 048
  13. OPDIVO [Suspect]
     Active Substance: NIVOLUMAB
     Indication: METASTATIC RENAL CELL CARCINOMA
     Dosage: 213.3 MILLIGRAM
     Route: 041
     Dates: start: 20170823, end: 20170921
  14. OLOPATADINE HYDROCHLORIDE. [Concomitant]
     Active Substance: OLOPATADINE HYDROCHLORIDE
     Indication: RASH
     Dosage: 5 MG,Q12H
     Route: 048
     Dates: start: 20170911

REACTIONS (3)
  - Malignant neoplasm progression [Unknown]
  - Rash [Recovered/Resolved]
  - Myelopathy [Recovered/Resolved]

NARRATIVE: CASE EVENT DATE: 20170911
